FAERS Safety Report 25945368 (Version 3)
Quarter: 2025Q4

REPORT INFORMATION
  Report Type: Spontaneous
  Country: CN (occurrence: CN)
  Receive Date: 20251021
  Receipt Date: 20251113
  Transmission Date: 20260118
  Serious: Yes (Death, Other)
  Sender: SANOFI AVENTIS
  Company Number: CN-SA-2025SA312519

PATIENT
  Age: 59 Year
  Sex: Male

DRUGS (4)
  1. ELOXATIN [Suspect]
     Active Substance: OXALIPLATIN
     Indication: Cholangiocarcinoma
     Dosage: 150 MG IVGTT DL
     Route: 041
     Dates: start: 20230512, end: 20251017
  2. TISLELIZUMAB [Concomitant]
     Active Substance: TISLELIZUMAB
     Dosage: IVGTT
     Route: 042
  3. GEMCITABINE [Concomitant]
     Active Substance: GEMCITABINE
     Dosage: DL, 8IVGTT
     Route: 042
  4. LENVATINIB [Concomitant]
     Active Substance: LENVATINIB
     Dosage: 8 MG, QD

REACTIONS (6)
  - Metastases to liver [Unknown]
  - Anaphylactic shock [Fatal]
  - Loss of consciousness [Fatal]
  - Pruritus [Fatal]
  - Drug hypersensitivity [Fatal]
  - Hyperhidrosis [Fatal]

NARRATIVE: CASE EVENT DATE: 20250918
